FAERS Safety Report 13353296 (Version 1)
Quarter: 2017Q1

REPORT INFORMATION
  Report Type: Spontaneous
  Country: US (occurrence: US)
  Receive Date: 20170317
  Receipt Date: 20170317
  Transmission Date: 20170429
  Serious: No
  Sender: FDA-Public Use
  Company Number: None

PATIENT
  Age: 72 Year
  Sex: Female

DRUGS (9)
  1. OMEPRAZOLE. [Concomitant]
     Active Substance: OMEPRAZOLE
  2. TRIAM [Concomitant]
     Active Substance: TRIAMCINOLONE
  3. VALSARTAN. [Concomitant]
     Active Substance: VALSARTAN
  4. DISONIDE [Concomitant]
  5. EZETIMIBE. [Concomitant]
     Active Substance: EZETIMIBE
  6. ALPRAZOLAM. [Concomitant]
     Active Substance: ALPRAZOLAM
  7. URSODIOL. [Concomitant]
     Active Substance: URSODIOL
  8. OMEGA 3 [Concomitant]
     Active Substance: OMEGA-3 FATTY ACIDS
  9. OCALIVA [Suspect]
     Active Substance: OBETICHOLIC ACID
     Indication: BILIARY CIRRHOSIS PRIMARY
     Route: 048
     Dates: start: 20170223

REACTIONS (2)
  - Pruritus [None]
  - Nasopharyngitis [None]

NARRATIVE: CASE EVENT DATE: 201702
